FAERS Safety Report 7434921-2 (Version None)
Quarter: 2011Q2

REPORT INFORMATION
  Report Type: 
  Country: None (occurrence: None)
  Receive Date: 20110418
  Receipt Date: 20110406
  Transmission Date: 20111010
  Serious: Yes (Hospitalization)
  Sender: FDA-Public Use
  Company Number: 2011001683

PATIENT
  Age: 70 Year
  Sex: Male

DRUGS (1)
  1. ERLOTINIB HYDROCHLORIDE [Suspect]
     Indication: NON-SMALL CELL LUNG CANCER
     Dosage: 150 MG, ORAL
     Route: 048
     Dates: start: 20110207, end: 20110304

REACTIONS (5)
  - GENERAL PHYSICAL HEALTH DETERIORATION [None]
  - CLOSTRIDIUM DIFFICILE COLITIS [None]
  - PYREXIA [None]
  - DISEASE PROGRESSION [None]
  - SKIN TOXICITY [None]
